FAERS Safety Report 17193049 (Version 1)
Quarter: 2019Q4

REPORT INFORMATION
  Report Type: Spontaneous
  Country: US (occurrence: US)
  Receive Date: 20191223
  Receipt Date: 20191223
  Transmission Date: 20200122
  Serious: Yes (Life-Threatening, Disabling, Other)
  Sender: FDA-Public Use
  Company Number: US-SA-2019SA352751

PATIENT
  Age: 79 Year
  Sex: Female
  Weight: 61.5 kg

DRUGS (24)
  1. ACETYLSALICYLIC ACID [Suspect]
     Active Substance: ASPIRIN
     Dosage: 100 MG, UNK
     Route: 048
     Dates: start: 20190819, end: 20190819
  2. METOPROLOL. [Concomitant]
     Active Substance: METOPROLOL
     Dosage: 25 MG, UNK
  3. ATORVASTATIN [Concomitant]
     Active Substance: ATORVASTATIN
     Dosage: 40 MG, UNK
     Dates: start: 20190513
  4. ONDANSETRON [Concomitant]
     Active Substance: ONDANSETRON
     Indication: ADVERSE EVENT
     Dosage: 4 MG, UNK
     Dates: start: 20191008, end: 20191008
  5. LIDOCAINE. [Concomitant]
     Active Substance: LIDOCAINE
     Indication: ADVERSE EVENT
     Dosage: 70 MG, UNK
     Dates: start: 20191008, end: 20191008
  6. ACETYLSALICYLIC ACID [Suspect]
     Active Substance: ASPIRIN
     Dosage: 100 MG, UNK
     Route: 048
     Dates: start: 20190820, end: 20190824
  7. ACETYLSALICYLIC ACID [Suspect]
     Active Substance: ASPIRIN
     Dosage: 100 MG, UNK
     Route: 048
     Dates: start: 20190926, end: 20190926
  8. OMNIPAQUE [Concomitant]
     Active Substance: IOHEXOL
     Indication: ADVERSE EVENT
     Dosage: 110 UNK
     Dates: start: 20191008, end: 20191008
  9. PLAVIX [Suspect]
     Active Substance: CLOPIDOGREL BISULFATE
     Dosage: 75 MG, UNK
     Route: 048
     Dates: start: 20190731, end: 20190731
  10. EPHEDRINE. [Concomitant]
     Active Substance: EPHEDRINE
     Indication: ADVERSE EVENT
     Dosage: 25 MG, UNK
     Dates: start: 20191008, end: 20191008
  11. PHENYLEPHRINE [Concomitant]
     Active Substance: PHENYLEPHRINE HYDROCHLORIDE
     Indication: ADVERSE EVENT
     Dosage: 400 UG, UNK
     Dates: start: 20191008, end: 20191008
  12. PLAVIX [Suspect]
     Active Substance: CLOPIDOGREL BISULFATE
     Dosage: 75 MG, UNK
     Route: 048
     Dates: start: 20190819, end: 20190819
  13. ACETYLSALICYLIC ACID [Suspect]
     Active Substance: ASPIRIN
     Dosage: 100 MG, UNK
     Route: 048
     Dates: start: 20190801, end: 20190818
  14. ACETYLSALICYLIC ACID [Suspect]
     Active Substance: ASPIRIN
     Dosage: 100 MG, UNK
     Route: 048
     Dates: start: 20190925, end: 20190925
  15. AMLODIPINE [Concomitant]
     Active Substance: AMLODIPINE BESYLATE
     Dosage: 5 MG, UNK
     Dates: start: 20190513, end: 20191008
  16. ESCITALOPRAM [Concomitant]
     Active Substance: ESCITALOPRAM OXALATE
     Indication: ADVERSE EVENT
     Dosage: 10 MG, UNK
     Dates: start: 20190915
  17. ACETYLSALICYLIC ACID [Suspect]
     Active Substance: ASPIRIN
     Dosage: 100 MG, UNK
     Route: 048
     Dates: start: 20190731, end: 20190731
  18. ISOVUE 370 [Concomitant]
     Active Substance: IOPAMIDOL
     Indication: ADVERSE EVENT
     Dosage: 100 UNK
     Dates: start: 20190904, end: 20190904
  19. CEFAZOLIN [Concomitant]
     Active Substance: CEFAZOLIN
     Dosage: 1 MG, UNK
     Dates: start: 20191008, end: 20191008
  20. NITROGLYCERINE [Concomitant]
     Active Substance: NITROGLYCERIN
     Indication: ADVERSE EVENT
     Dosage: 0.5 MG, UNK
     Dates: start: 20191008, end: 20191008
  21. PLAVIX [Suspect]
     Active Substance: CLOPIDOGREL BISULFATE
     Dosage: 75 MG, UNK
     Route: 048
     Dates: start: 20190801, end: 20190818
  22. POTASSIUM CHLORIDE. [Concomitant]
     Active Substance: POTASSIUM CHLORIDE
     Indication: ADVERSE EVENT
     Dosage: 20 UNK, UNK
     Dates: start: 20191008, end: 20191008
  23. FENTANYL. [Concomitant]
     Active Substance: FENTANYL
     Indication: ADVERSE EVENT
     Dosage: 25 UG, UNK
     Dates: start: 20191008, end: 20191008
  24. PROPOFOL. [Concomitant]
     Active Substance: PROPOFOL
     Indication: ADVERSE EVENT
     Dosage: 200 MG, UNK
     Dates: start: 20191008, end: 20191008

REACTIONS (1)
  - Ischaemic stroke [Not Recovered/Not Resolved]

NARRATIVE: CASE EVENT DATE: 20190911
